FAERS Safety Report 10235090 (Version 2)
Quarter: 2014Q3

REPORT INFORMATION
  Report Type: Spontaneous
  Country: US (occurrence: US)
  Receive Date: 20140613
  Receipt Date: 20140808
  Transmission Date: 20150326
  Serious: No
  Sender: FDA-Public Use
  Company Number: US-009507513-1406USA007059

PATIENT
  Sex: Female
  Weight: 77.98 kg

DRUGS (4)
  1. SYNTHROID [Concomitant]
     Active Substance: LEVOTHYROXINE SODIUM
     Indication: AUTOIMMUNE THYROIDITIS
     Dosage: 100 MICROGRAM, QD
  2. SYNTHROID [Concomitant]
     Active Substance: LEVOTHYROXINE SODIUM
     Indication: HYPOTHYROIDISM
  3. OXYTROL FOR WOMEN [Suspect]
     Active Substance: OXYBUTYNIN
     Indication: BLADDER DISORDER
     Dosage: UNK, UNKNOWN
     Route: 062
     Dates: start: 201404, end: 201405
  4. VITAMINS (UNSPECIFIED) [Concomitant]
     Active Substance: VITAMINS
     Indication: PRODUCT USED FOR UNKNOWN INDICATION
     Dosage: UNK, UNKNOWN

REACTIONS (8)
  - Inappropriate schedule of drug administration [Unknown]
  - Skin irritation [Unknown]
  - Erythema [Recovered/Resolved]
  - Pruritus [Unknown]
  - Application site swelling [Recovered/Resolved]
  - Application site inflammation [Unknown]
  - Swelling [Unknown]
  - Application site pruritus [Recovering/Resolving]

NARRATIVE: CASE EVENT DATE: 2014
